FAERS Safety Report 6306501-3 (Version None)
Quarter: 2009Q3

REPORT INFORMATION
  Report Type: 
  Country: None (occurrence: None)
  Receive Date: 20090812
  Receipt Date: 20090731
  Transmission Date: 20100115
  Serious: Yes (Other)
  Sender: FDA-Public Use
  Company Number: FR-WATSON-2009-06217

PATIENT
  Age: 71 Year
  Sex: Female

DRUGS (1)
  1. MEPIVACAINE HYDROCHLORIDE (WATSON LABORATORIES) [Suspect]
     Indication: ANAESTHESIA
     Dosage: 14 ML, UNK

REACTIONS (2)
  - BLINDNESS [None]
  - RETINAL ARTERY OCCLUSION [None]
